FAERS Safety Report 9324240 (Version 1)
Quarter: 2013Q2

REPORT INFORMATION
  Report Type: Spontaneous
  Country: JP (occurrence: None)
  Receive Date: 20130529
  Receipt Date: 20130529
  Transmission Date: 20140414
  Serious: Yes (Other)
  Sender: FDA-Public Use
  Company Number: 2013050055

PATIENT
  Age: 71 Year
  Sex: Female

DRUGS (3)
  1. 5-AMINOSALICYCLIC [Suspect]
  2. PREDNISONE (PREDNISONE) [Suspect]
  3. AZATHIOPRINE [Suspect]

REACTIONS (1)
  - Pneumocystis jirovecii pneumonia [None]
